FAERS Safety Report 16214262 (Version 10)
Quarter: 2020Q1

REPORT INFORMATION
  Report Type: Report from Study
  Country: US (occurrence: US)
  Receive Date: 20190418
  Receipt Date: 20200316
  Transmission Date: 20200409
  Serious: Yes (Hospitalization, Other)
  Sender: FDA-Public Use
  Company Number: US-MALLINCKRODT-T201704445

PATIENT
  Age: 72 Year
  Sex: Male

DRUGS (18)
  1. REPOSITORY CORTICOTROPIN INJECTION [Suspect]
     Active Substance: CORTICOTROPIN
     Dosage: 40 UNITS / .5 ML, 2 TIMES PER WEEK (MONDAY AND THURSDAY)
     Route: 058
  2. REPOSITORY CORTICOTROPIN INJECTION [Suspect]
     Active Substance: CORTICOTROPIN
     Dosage: 80 UNITS/1 ML, 2 TIMES PER WEEK (TUESDAY AND THURSDAY)
     Route: 058
     Dates: start: 2019
  3. REPOSITORY CORTICOTROPIN INJECTION [Suspect]
     Active Substance: CORTICOTROPIN
     Dosage: 40 UNITS / .5 ML, 2 TIMES PER WEEK (TUESDAY AND THURSDAY)
     Route: 058
     Dates: end: 201903
  4. REPOSITORY CORTICOTROPIN INJECTION [Suspect]
     Active Substance: CORTICOTROPIN
     Dosage: 80 UNITS, TWICE WEEKLY
     Route: 058
     Dates: start: 20200210
  5. VITAMIN B12 [Concomitant]
     Active Substance: CYANOCOBALAMIN
     Indication: PRODUCT USED FOR UNKNOWN INDICATION
     Dosage: UNKNOWN
     Route: 065
  6. REPOSITORY CORTICOTROPIN INJECTION [Suspect]
     Active Substance: CORTICOTROPIN
     Dosage: 40 UNITS / .5 ML, 2 TIMES PER WEEK (MONDAY AND THURSDAY)
     Route: 058
  7. REPOSITORY CORTICOTROPIN INJECTION [Suspect]
     Active Substance: CORTICOTROPIN
     Dosage: 80 UNITS/1ML, 2 TIMES PER WEEK, TUESDAYS AND FRIDAY
     Route: 058
  8. PREDNISONE. [Suspect]
     Active Substance: PREDNISONE
     Dosage: 8 MILLIGRAM
     Route: 065
  9. POTASSIUM [Concomitant]
     Active Substance: POTASSIUM
     Indication: PRODUCT USED FOR UNKNOWN INDICATION
     Dosage: UNK
     Route: 065
  10. REPOSITORY CORTICOTROPIN INJECTION [Suspect]
     Active Substance: CORTICOTROPIN
     Indication: SARCOIDOSIS
     Dosage: 40 UNITS / .5 ML, 2 TIMES PER WEEK (MONDAY AND THURSDAY)
     Route: 058
     Dates: start: 20171016
  11. REPOSITORY CORTICOTROPIN INJECTION [Suspect]
     Active Substance: CORTICOTROPIN
     Dosage: 40 UNITS / .5 ML, 2 TIMES PER WEEK (TUESDAY AND THURSDAY)
     Route: 058
     Dates: start: 2019, end: 2019
  12. PREDNISONE. [Suspect]
     Active Substance: PREDNISONE
     Dosage: 3 MILLIGRAM
     Route: 065
  13. REPOSITORY CORTICOTROPIN INJECTION [Suspect]
     Active Substance: CORTICOTROPIN
     Dosage: 40 UNITS/0.5 ML, 2 TIMES PER WEEK (TUESDAY AND THURSDAY)
     Route: 058
     Dates: start: 2019, end: 2019
  14. PREDNISONE. [Suspect]
     Active Substance: PREDNISONE
     Indication: PRODUCT USED FOR UNKNOWN INDICATION
     Dosage: 40 MILLIGRAM
     Route: 065
  15. PREDNISONE. [Suspect]
     Active Substance: PREDNISONE
     Dosage: 4 MILLIGRAM
     Route: 065
  16. ALLOPURINOL. [Concomitant]
     Active Substance: ALLOPURINOL
     Indication: PRODUCT USED FOR UNKNOWN INDICATION
     Dosage: UNKNOWN
     Route: 065
  17. REPOSITORY CORTICOTROPIN INJECTION [Suspect]
     Active Substance: CORTICOTROPIN
     Dosage: 40 UNITS / .5 ML, 2 TIMES PER WEEK (MONDAY AND THURSDAY)
     Route: 058
  18. REPOSITORY CORTICOTROPIN INJECTION [Suspect]
     Active Substance: CORTICOTROPIN
     Dosage: 40 UNITS / .5 ML, 2 TIMES PER WEEK (MONDAY AND THURSDAY)
     Route: 058

REACTIONS (69)
  - Chest pain [Unknown]
  - Intestinal perforation [Unknown]
  - Influenza [Not Recovered/Not Resolved]
  - Precancerous skin lesion [Unknown]
  - Pulmonary fibrosis [Unknown]
  - Retinal detachment [Unknown]
  - Fatigue [Unknown]
  - Salivary hypersecretion [Unknown]
  - Memory impairment [Unknown]
  - Musculoskeletal chest pain [Unknown]
  - Anxiety [Unknown]
  - Decreased appetite [Unknown]
  - Product dose omission [Unknown]
  - Dehydration [Recovering/Resolving]
  - Osteoporosis [Not Recovered/Not Resolved]
  - Bone pain [Unknown]
  - Pain in extremity [Unknown]
  - Abdominal pain upper [Unknown]
  - Condition aggravated [Unknown]
  - Blindness [Unknown]
  - Scar [Unknown]
  - Joint lock [Unknown]
  - Fall [Unknown]
  - Renal aneurysm [Unknown]
  - Frustration tolerance decreased [Not Recovered/Not Resolved]
  - Colostomy [Unknown]
  - Oesophageal ulcer [Unknown]
  - Spinal compression fracture [Not Recovered/Not Resolved]
  - Feeding disorder [Unknown]
  - Nausea [Unknown]
  - Paraesthesia [Unknown]
  - Hiatus hernia [Unknown]
  - Increased appetite [Unknown]
  - Oedema peripheral [Unknown]
  - Hypotension [Unknown]
  - Myocardial necrosis marker increased [Unknown]
  - Sarcoidosis [Unknown]
  - Oxygen saturation decreased [Unknown]
  - Bronchitis [Unknown]
  - Hypokalaemia [Unknown]
  - Malaise [Not Recovered/Not Resolved]
  - Visual impairment [Unknown]
  - Pain [Recovering/Resolving]
  - Musculoskeletal discomfort [Unknown]
  - Hormone level abnormal [Unknown]
  - Heart rate increased [Unknown]
  - Depression [Not Recovered/Not Resolved]
  - Open fracture [Not Recovered/Not Resolved]
  - Aortic aneurysm [Unknown]
  - Dry eye [Unknown]
  - Feeling abnormal [Unknown]
  - Injection site pain [Unknown]
  - Drug ineffective [Not Recovered/Not Resolved]
  - Pneumonia [Unknown]
  - Dyspnoea [Not Recovered/Not Resolved]
  - Gout [Unknown]
  - Abdominal discomfort [Unknown]
  - Weight decreased [Unknown]
  - Injection site scar [Unknown]
  - Cerebrovascular accident [Unknown]
  - Fracture treatment [Unknown]
  - Myalgia [Unknown]
  - Asthenia [Not Recovered/Not Resolved]
  - Loss of personal independence in daily activities [Unknown]
  - Hypoacusis [Unknown]
  - Gait disturbance [Not Recovered/Not Resolved]
  - Oropharyngeal pain [Unknown]
  - Impatience [Unknown]
  - Insomnia [Unknown]

NARRATIVE: CASE EVENT DATE: 2018
